FAERS Safety Report 18214698 (Version 2)
Quarter: 2020Q4

REPORT INFORMATION
  Report Type: Report from Study
  Country: None (occurrence: US)
  Receive Date: 20200831
  Receipt Date: 20201110
  Transmission Date: 20210113
  Serious: Yes (Hospitalization, Other)
  Sender: FDA-Public Use
  Company Number: US-ABBVIE-20P-163-3312312-00

PATIENT
  Age: 75 Year
  Sex: Male

DRUGS (6)
  1. IMBRUVICA [Suspect]
     Active Substance: IBRUTINIB
     Indication: MANTLE CELL LYMPHOMA
     Route: 048
     Dates: start: 20160517, end: 20180419
  2. IMBRUVICA [Suspect]
     Active Substance: IBRUTINIB
     Indication: MANTLE CELL LYMPHOMA
     Route: 048
     Dates: start: 20180420, end: 20200302
  3. CALQUENCE [Suspect]
     Active Substance: ACALABRUTINIB
     Indication: MANTLE CELL LYMPHOMA
     Route: 065
  4. AMOXICILLIN. [Suspect]
     Active Substance: AMOXICILLIN
     Indication: INFECTION
     Route: 065
  5. IMBRUVICA [Suspect]
     Active Substance: IBRUTINIB
     Route: 048
     Dates: start: 20180416
  6. ELIQUIS [Suspect]
     Active Substance: APIXABAN
     Indication: PRODUCT USED FOR UNKNOWN INDICATION
     Route: 065

REACTIONS (16)
  - Abdominal pain upper [Unknown]
  - Constipation [Unknown]
  - Hyperkeratosis [Unknown]
  - Sputum discoloured [Unknown]
  - Fatigue [Unknown]
  - Infection [Unknown]
  - Anaemia [Unknown]
  - Stent placement [Unknown]
  - Pain [Unknown]
  - Back pain [Unknown]
  - Pneumonia [Unknown]
  - Asthenia [Unknown]
  - Limb discomfort [Unknown]
  - Abdominal rigidity [Unknown]
  - Musculoskeletal stiffness [Unknown]
  - Productive cough [Unknown]

NARRATIVE: CASE EVENT DATE: 20200714
